FAERS Safety Report 6223808-9 (Version None)
Quarter: 2009Q2

REPORT INFORMATION
  Report Type: 
  Country: None (occurrence: None)
  Receive Date: 20090611
  Receipt Date: 20090303
  Transmission Date: 20091009
  Serious: Yes (Hospitalization, Other)
  Sender: FDA-Public Use
  Company Number: US-ABBOTT-09P-163-0560150-00

PATIENT
  Sex: Female
  Weight: 81.72 kg

DRUGS (9)
  1. HUMIRA [Suspect]
     Indication: CROHN'S DISEASE
     Route: 058
     Dates: start: 20090201
  2. HUMIRA [Suspect]
     Route: 058
     Dates: start: 20080401, end: 20080801
  3. HUMIRA [Suspect]
     Route: 058
     Dates: start: 20071101, end: 20080201
  4. MERCAPTOPURINE [Concomitant]
     Indication: DRUG USE FOR UNKNOWN INDICATION
  5. PREDNISONE [Concomitant]
     Indication: DRUG USE FOR UNKNOWN INDICATION
     Route: 048
  6. PREDNISONE [Concomitant]
     Route: 048
  7. PREDNISONE [Concomitant]
     Route: 048
  8. PHENERGAN [Concomitant]
     Indication: NAUSEA
  9. HYDROCODONE BITARTRATE [Concomitant]
     Indication: PAIN

REACTIONS (4)
  - ABSCESS [None]
  - CROHN'S DISEASE [None]
  - PAIN [None]
  - VOMITING [None]
